FAERS Safety Report 4346026-8 (Version None)
Quarter: 2004Q2

REPORT INFORMATION
  Report Type: 
  Country: None (occurrence: None)
  Receive Date: 20040423
  Receipt Date: 20040419
  Transmission Date: 20050107
  Serious: Yes (Hospitalization)
  Sender: FDA-Public Use
  Company Number: NITR20040002

PATIENT
  Age: 27 Year
  Sex: Female
  Weight: 48.9885 kg

DRUGS (5)
  1. NITROGLYCERIN [Suspect]
     Indication: HYPERTENSION
     Dosage: 0.8 MG, TWICE SL
     Route: 060
     Dates: start: 20030115, end: 20030115
  2. MAGNESIUM SULFATE [Concomitant]
  3. URAPIDIL [Concomitant]
  4. METOPROLOL [Concomitant]
  5. VERAPAMIL [Concomitant]

REACTIONS (10)
  - BLINDNESS [None]
  - BLOOD PRESSURE INCREASED [None]
  - BRAIN OEDEMA [None]
  - BRAIN SCAN ABNORMAL [None]
  - ENCEPHALOPATHY [None]
  - GRAND MAL CONVULSION [None]
  - HEADACHE [None]
  - MEMORY IMPAIRMENT [None]
  - PRE-ECLAMPSIA [None]
  - VISION BLURRED [None]
